FAERS Safety Report 8231995-6 (Version None)
Quarter: 2012Q1

REPORT INFORMATION
  Report Type: 
  Country: None (occurrence: None)
  Receive Date: 20120320
  Receipt Date: 20120309
  Transmission Date: 20120608
  Serious: Yes (Other)
  Sender: FDA-Public Use
  Company Number: PD 156

PATIENT
  Age: 24 Year
  Sex: Female

DRUGS (1)
  1. LEVETIRACETAM [Suspect]
     Indication: GRAND MAL CONVULSION
     Dosage: 1500MG/DAY

REACTIONS (6)
  - MEMORY IMPAIRMENT [None]
  - APHASIA [None]
  - MASKED FACIES [None]
  - GRAND MAL CONVULSION [None]
  - BRADYPHRENIA [None]
  - CONFUSIONAL STATE [None]
